FAERS Safety Report 8743286 (Version 2)
Quarter: 2013Q1

REPORT INFORMATION
  Report Type: Spontaneous
  Country: US (occurrence: US)
  Receive Date: 20120824
  Receipt Date: 20130121
  Transmission Date: 20140127
  Serious: No
  Sender: FDA-Public Use
  Company Number: US-009507513-1208USA000812

PATIENT
  Sex: Male
  Weight: 113.38 kg

DRUGS (10)
  1. MIRALAX [Suspect]
     Indication: CONSTIPATION
     Dosage: UNK, BID
     Route: 048
     Dates: start: 2007
  2. MIRALAX [Suspect]
     Indication: MEDICAL OBSERVATION
  3. METFORMIN [Concomitant]
     Indication: DIABETES MELLITUS
     Dosage: UNK, UNKNOWN
  4. BENAZEPRIL HYDROCHLORIDE [Concomitant]
     Indication: BLOOD PRESSURE
     Dosage: UNK, UNKNOWN
  5. MONONITR ISOSORB NORMON [Concomitant]
     Indication: CHEST PAIN
     Dosage: UNK, UNKNOWN
  6. HYDROCODONE/APAP [Concomitant]
     Indication: BACK PAIN
     Dosage: UNK, UNKNOWN
  7. HYDROCODONE/APAP [Concomitant]
     Indication: PAIN IN EXTREMITY
  8. ENABLEX [Concomitant]
     Indication: DIURETIC THERAPY
     Dosage: UNK, UNKNOWN
  9. DIGOXIN [Concomitant]
     Indication: HEART RATE IRREGULAR
     Dosage: UNK, UNKNOWN
  10. LIPITOR [Concomitant]
     Indication: BLOOD CHOLESTEROL INCREASED
     Dosage: UNK, UNKNOWN

REACTIONS (2)
  - Inappropriate schedule of drug administration [Unknown]
  - Incorrect drug administration duration [Unknown]
